FAERS Safety Report 5004647-3 (Version None)
Quarter: 2006Q2

REPORT INFORMATION
  Report Type: 
  Country: None (occurrence: None)
  Receive Date: 20060517
  Receipt Date: 20060505
  Transmission Date: 20061013
  Serious: Yes (Life-Threatening, Hospitalization)
  Sender: FDA-Public Use
  Company Number: US-BRISTOL-MYERS SQUIBB COMPANY-13374145

PATIENT
  Age: 16 Year
  Sex: Female

DRUGS (2)
  1. BLINDED: ARIPIPRAZOLE [Suspect]
     Indication: SCHIZOPHRENIA
     Route: 048
     Dates: start: 20060410, end: 20060426
  2. BLINDED: PLACEBO [Suspect]
     Indication: SCHIZOPHRENIA
     Dates: start: 20060410, end: 20060426

REACTIONS (2)
  - DEPRESSION [None]
  - SUICIDAL IDEATION [None]
